FAERS Safety Report 13661916 (Version 2)
Quarter: 2017Q3

REPORT INFORMATION
  Report Type: Spontaneous
  Country: US (occurrence: US)
  Receive Date: 20170616
  Receipt Date: 20170728
  Transmission Date: 20171127
  Serious: Yes (Other)
  Sender: FDA-Public Use
  Company Number: US-PRINSTON PHARMACEUTICAL INC.-2017PRN00265

PATIENT
  Age: 51 Year
  Sex: Female
  Weight: 58.96 kg

DRUGS (9)
  1. IBGARD [Concomitant]
  2. LINZESS [Concomitant]
     Active Substance: LINACLOTIDE
  3. LYBREL [Concomitant]
     Active Substance: ETHINYL ESTRADIOL\LEVONORGESTREL
  4. LEVETIRACETAM. [Suspect]
     Active Substance: LEVETIRACETAM
     Indication: SEIZURE
     Dosage: 500 MG, 2X/DAY
     Route: 048
     Dates: start: 20170527, end: 20170529
  5. SYNTHROID [Concomitant]
     Active Substance: LEVOTHYROXINE SODIUM
     Dosage: 75 ?G, 1X/DAY
  6. MULTIVITAMIN [Concomitant]
     Active Substance: VITAMINS
     Dosage: UNK, 1X/DAY
  7. BABY ASPIRIN [Concomitant]
     Active Substance: ASPIRIN
     Dosage: 81 MG, 1X/DAY
  8. KLONOPIN [Concomitant]
     Active Substance: CLONAZEPAM
     Dosage: 2.5 MG, 2X/DAY
  9. PEPPERMINT LONGENZES [Concomitant]

REACTIONS (6)
  - Seizure [Recovered/Resolved]
  - Reaction to excipient [Recovered/Resolved]
  - Motion sickness [Recovered/Resolved]
  - Product substitution issue [Recovered/Resolved]
  - Repetitive speech [Recovered/Resolved]
  - Crying [Recovered/Resolved]

NARRATIVE: CASE EVENT DATE: 201705
